FAERS Safety Report 8611238-1 (Version None)
Quarter: 2012Q3

REPORT INFORMATION
  Report Type: 
  Country: None (occurrence: None)
  Receive Date: 20120822
  Receipt Date: 20120724
  Transmission Date: 20120928
  Serious: Yes (Hospitalization, Congenital Anomaly)
  Sender: FDA-Public Use
  Company Number: GB-BAYER-2012-081608

PATIENT
  Sex: Male
  Weight: 2.36 kg

DRUGS (6)
  1. ATORVASTATIN [Suspect]
     Route: 064
  2. ASPIRIN [Suspect]
     Route: 064
  3. FOLIC ACID [Suspect]
     Route: 064
  4. FENOFIBRATE [Suspect]
     Route: 064
  5. BETAMETHASONE [Suspect]
     Route: 064
  6. INSULIN [Suspect]
     Route: 064

REACTIONS (2)
  - CEREBRAL DYSGENESIS [None]
  - PREMATURE BABY [None]
